FAERS Safety Report 4264818-0 (Version None)
Quarter: 2004Q1

REPORT INFORMATION
  Report Type: 
  Country: None (occurrence: None)
  Receive Date: 20040105
  Receipt Date: 20031223
  Transmission Date: 20041129
  Serious: Yes (Death)
  Sender: FDA-Public Use
  Company Number: OXCD20030014

PATIENT
  Age: 48 Year
  Sex: Male

DRUGS (3)
  1. OXYCODONE HCL [Suspect]
     Dates: start: 20020101, end: 20020101
  2. MORPHINE [Suspect]
     Dates: start: 20020101, end: 20020101
  3. CYCLOBENZAPR [Suspect]
     Dates: start: 20020101, end: 20020101

REACTIONS (1)
  - DRUG TOXICITY [None]
